FAERS Safety Report 8047889-5 (Version None)
Quarter: 2012Q1

REPORT INFORMATION
  Report Type: 
  Country: None (occurrence: None)
  Receive Date: 20120116
  Receipt Date: 20051018
  Transmission Date: 20120608
  Serious: Yes (Other)
  Sender: FDA-Public Use
  Company Number: PHHY2005CO007138

PATIENT

DRUGS (1)
  1. EXELON [Suspect]

REACTIONS (3)
  - PARALYSIS [None]
  - FALL [None]
  - SPINAL COLUMN INJURY [None]
